FAERS Safety Report 4753650-7 (Version None)
Quarter: 2005Q3

REPORT INFORMATION
  Report Type: 
  Country: None (occurrence: None)
  Receive Date: 20050824
  Receipt Date: 20050804
  Transmission Date: 20060218
  Serious: Yes (Death, Life-Threatening, Hospitalization)
  Sender: FDA-Public Use
  Company Number: FR_050806907

PATIENT
  Age: 61 Year
  Sex: Male

DRUGS (3)
  1. CIALIS [Suspect]
     Dates: start: 20050620
  2. KARDEGIC (ACETYLSALICYLATE LYSINE) [Concomitant]
  3. PLAVIX [Concomitant]

REACTIONS (13)
  - AKINESIA [None]
  - ANOXIA [None]
  - ARTERIAL DISORDER [None]
  - CARDIAC ARREST [None]
  - CARDIAC VENTRICULAR DISORDER [None]
  - COMA [None]
  - CORONARY ARTERY STENOSIS [None]
  - EJECTION FRACTION DECREASED [None]
  - LOSS OF CONSCIOUSNESS [None]
  - MYOCLONUS [None]
  - PNEUMONIA ASPIRATION [None]
  - VENTRICULAR FIBRILLATION [None]
  - VOMITING [None]
